FAERS Safety Report 4493095-0 (Version None)
Quarter: 2004Q4

REPORT INFORMATION
  Report Type: 
  Country: None (occurrence: None)
  Receive Date: 20041104
  Receipt Date: 20041027
  Transmission Date: 20050328
  Serious: Yes (Hospitalization)
  Sender: FDA-Public Use
  Company Number: US-GLAXOSMITHKLINE-A0531634B

PATIENT
  Age: 51 Year
  Sex: Male
  Weight: 90.9 kg

DRUGS (8)
  1. TOPOTECAN [Suspect]
     Indication: GLIOBLASTOMA MULTIFORME
     Dosage: 2.5MGM2 CYCLIC
     Route: 042
     Dates: start: 20040825, end: 20040901
  2. TEMODAR [Suspect]
     Indication: GLIOBLASTOMA MULTIFORME
     Dosage: 125MGM2 CYCLIC
     Route: 048
     Dates: start: 20040827, end: 20040829
  3. TRILEPTAL [Concomitant]
     Indication: CONVULSION
     Dosage: 300MG TWICE PER DAY
     Route: 048
     Dates: start: 20040721
  4. LASIX [Concomitant]
     Indication: OEDEMA
     Dosage: 40MG TWICE PER DAY
     Route: 048
     Dates: start: 20040511
  5. POTASSIUM [Concomitant]
     Indication: HYPOKALAEMIA
     Dosage: 20MEQ TWICE PER DAY
     Route: 048
     Dates: start: 20040511
  6. DECADRON [Concomitant]
     Indication: OEDEMA
     Dosage: 4MG PER DAY
     Route: 048
     Dates: start: 20040220
  7. PRILOSEC [Concomitant]
     Indication: GASTROOESOPHAGEAL REFLUX DISEASE
     Dosage: 20MG PER DAY
     Route: 048
     Dates: start: 20040227
  8. INSULIN [Concomitant]
     Indication: DIABETES MELLITUS
     Dates: start: 20040627

REACTIONS (3)
  - HERPES SIMPLEX [None]
  - RASH GENERALISED [None]
  - THROMBOCYTOPENIA [None]
